FAERS Safety Report 4595028-5 (Version None)
Quarter: 2005Q1

REPORT INFORMATION
  Report Type: 
  Country: None (occurrence: None)
  Receive Date: 20050223
  Receipt Date: 20050125
  Transmission Date: 20050727
  Serious: Yes (Death)
  Sender: FDA-Public Use
  Company Number: 2005018645

PATIENT
  Age: 62 Year
  Sex: Female
  Weight: 64.2 kg

DRUGS (18)
  1. SILDENAFIL                  (SILDENAFIL) [Suspect]
     Indication: PULMONARY HYPERTENSION
     Dosage: 120 MG (40 MG, 3 IN 1 D), ORAL
     Route: 048
     Dates: end: 20050125
  2. EPOPROSTENOL [Concomitant]
  3. SERTRALINE HYDROCHLORIDE [Concomitant]
  4. FUROSEMIDE [Concomitant]
  5. POTASSIUM CHLORIDE [Concomitant]
  6. BECLOMETHASONE DIPROPIONATE [Concomitant]
  7. LANSOPRAZOLE [Concomitant]
  8. MULTVITAMINS [Concomitant]
  9. FERROUS SULFATE TAB [Concomitant]
  10. ZINC [Concomitant]
  11. CETIRIZINE HCL [Concomitant]
  12. PRAVASTATIN SODIUM [Concomitant]
  13. WARFARIN SODIUM [Concomitant]
  14. VALDECOXIB [Concomitant]
  15. SERETIDE MITE                (FLUTICASONE PROPIONATE, SALMETEROL XINAF [Concomitant]
  16. PARACETAMOL [Concomitant]
  17. ALPRAZOLAM [Concomitant]
  18. TRAMADOL HCL [Concomitant]

REACTIONS (8)
  - CARDIAC ARREST [None]
  - CIRCULATORY COLLAPSE [None]
  - DIZZINESS [None]
  - FATIGUE [None]
  - HEADACHE [None]
  - HYPOTENSION [None]
  - MEDICATION ERROR [None]
  - NASAL CONGESTION [None]
